FAERS Safety Report 7777426-1 (Version None)
Quarter: 2011Q3

REPORT INFORMATION
  Report Type: 
  Country: None (occurrence: None)
  Receive Date: 20110926
  Receipt Date: 20110919
  Transmission Date: 20111222
  Serious: Yes (Other)
  Sender: FDA-Public Use
  Company Number: US-SANOFI-AVENTIS-2011SA055890

PATIENT
  Age: 10 Year
  Sex: Male

DRUGS (2)
  1. SOLOSTAR [Suspect]
     Indication: TYPE 2 DIABETES MELLITUS
     Dates: start: 20110823
  2. LANTUS [Suspect]
     Indication: TYPE 2 DIABETES MELLITUS
     Dosage: RECEIVED ABOUT 20 UNITS RATHER THAN 5 UNITS ON 23-AUG-2011 DOSE:5 UNIT(S)
     Route: 058
     Dates: start: 20110823

REACTIONS (2)
  - PRODUCT QUALITY ISSUE [None]
  - HYPOGLYCAEMIA [None]
